FAERS Safety Report 18275787 (Version 1)
Quarter: 2020Q3

REPORT INFORMATION
  Report Type: Report from Study
  Country: JP (occurrence: JP)
  Receive Date: 20200916
  Receipt Date: 20200916
  Transmission Date: 20201103
  Serious: Yes (Other)
  Sender: FDA-Public Use
  Company Number: JP-ALXN-A202013140AA

PATIENT

DRUGS (7)
  1. STRENSIQ [Suspect]
     Active Substance: ASFOTASE ALFA
     Indication: HYPOPHOSPHATASIA
     Dosage: 2 MG/KG, TIW
     Route: 058
     Dates: start: 20190320
  2. CALCIUM COMPOUNDS [Concomitant]
     Indication: HYPOPHOSPHATASIA
     Dosage: UNK
     Route: 041
     Dates: start: 20190315, end: 20191218
  3. VITAMIN B6 [Concomitant]
     Active Substance: PYRIDOXINE HYDROCHLORIDE
     Indication: HYPOPHOSPHATASIA
     Dosage: 10?20MG/KG/DAY, BID
     Route: 048
     Dates: start: 20190406
  4. TADALAFIL. [Concomitant]
     Active Substance: TADALAFIL
     Indication: HYPOPHOSPHATASIA
     Dosage: 0.5?1MG/KG/DAY, QD
     Route: 048
     Dates: start: 20190803
  5. SODIUM PHOSPHATE [Concomitant]
     Active Substance: SODIUM PHOSPHATE
     Indication: HYPOPHOSPHATASIA
     Dosage: UNK
     Route: 041
     Dates: start: 20190321, end: 20200107
  6. BOSENTAN. [Concomitant]
     Active Substance: BOSENTAN
     Indication: PRODUCT USED FOR UNKNOWN INDICATION
  7. BOSENTAN. [Concomitant]
     Active Substance: BOSENTAN
     Indication: HYPOPHOSPHATASIA
     Dosage: 1?4MG/KG/DAY, BID
     Route: 048
     Dates: start: 20190701

REACTIONS (3)
  - Nephrocalcinosis [Unknown]
  - Craniosynostosis [Not Recovered/Not Resolved]
  - Primary hypothyroidism [Recovering/Resolving]

NARRATIVE: CASE EVENT DATE: 20191023
